FAERS Safety Report 16451510 (Version 1)
Quarter: 2019Q2

REPORT INFORMATION
  Report Type: Spontaneous
  Country: AT (occurrence: AT)
  Receive Date: 20190619
  Receipt Date: 20190619
  Transmission Date: 20190711
  Serious: Yes (Death, Hospitalization, Other)
  Sender: FDA-Public Use
  Company Number: AT-AMGEN-AUTSP2019094666

PATIENT

DRUGS (9)
  1. VP-16 [Concomitant]
     Active Substance: ETOPOSIDE
     Indication: NON-HODGKIN^S LYMPHOMA UNSPECIFIED HISTOLOGY AGGRESSIVE
     Dosage: UNK UNK, QWK
  2. EPIRUBICIN [Concomitant]
     Active Substance: EPIRUBICIN
     Indication: NON-HODGKIN^S LYMPHOMA UNSPECIFIED HISTOLOGY AGGRESSIVE
     Dosage: UNK UNK, QWK
  3. FILGRASTIM [Suspect]
     Active Substance: FILGRASTIM
     Indication: PROPHYLAXIS
     Dosage: 5 MICROGRAM/KILOGRAM, CYCLICAL
     Route: 058
  4. CYCLOPHOSPHAMIDE. [Concomitant]
     Active Substance: CYCLOPHOSPHAMIDE
     Indication: NON-HODGKIN^S LYMPHOMA UNSPECIFIED HISTOLOGY AGGRESSIVE
     Dosage: UNK UNK, QWK
  5. METHOTREXATE. [Concomitant]
     Active Substance: METHOTREXATE
     Indication: NON-HODGKIN^S LYMPHOMA UNSPECIFIED HISTOLOGY AGGRESSIVE
     Dosage: UNK UNK, QWK
  6. IFOSFAMIDE. [Concomitant]
     Active Substance: IFOSFAMIDE
     Indication: NON-HODGKIN^S LYMPHOMA UNSPECIFIED HISTOLOGY AGGRESSIVE
     Dosage: UNK UNK, QWK
  7. VINCRISTINE [Concomitant]
     Active Substance: VINCRISTINE
     Indication: NON-HODGKIN^S LYMPHOMA UNSPECIFIED HISTOLOGY AGGRESSIVE
     Dosage: UNK UNK, QWK
  8. PREDNISOLONE. [Concomitant]
     Active Substance: PREDNISOLONE
     Indication: NON-HODGKIN^S LYMPHOMA UNSPECIFIED HISTOLOGY AGGRESSIVE
     Dosage: UNK UNK, QWK
  9. DEXAMETHASONE. [Concomitant]
     Active Substance: DEXAMETHASONE
     Indication: NON-HODGKIN^S LYMPHOMA UNSPECIFIED HISTOLOGY AGGRESSIVE
     Dosage: UNK UNK, QWK

REACTIONS (4)
  - Haematotoxicity [Unknown]
  - Febrile neutropenia [Unknown]
  - Bone pain [Unknown]
  - Neutropenic infection [Fatal]
